FAERS Safety Report 4468533-X (Version None)
Quarter: 2004Q4

REPORT INFORMATION
  Report Type: 
  Country: None (occurrence: None)
  Receive Date: 20041007
  Receipt Date: 20020807
  Transmission Date: 20050328
  Serious: Yes (Hospitalization)
  Sender: FDA-Public Use
  Company Number: PHBS2002JP09469

PATIENT
  Age: 3 Year
  Sex: Female
  Weight: 22 kg

DRUGS (9)
  1. NEORAL [Suspect]
     Indication: STEM CELL TRANSPLANT
     Dosage: 100 MG/D
     Route: 048
     Dates: start: 19990804, end: 20010521
  2. METHYLPREDNISOLONE [Concomitant]
     Dosage: PULSE
     Dates: start: 20001225
  3. METHYLPREDNISOLONE [Concomitant]
     Dosage: 500 MG/D
     Route: 042
     Dates: start: 20010515, end: 20010517
  4. PREDONINE [Concomitant]
     Dosage: 40 MG/D
     Route: 048
     Dates: start: 20001228, end: 20020601
  5. BAKTAR [Concomitant]
     Dosage: 1.5 G/D
     Route: 048
     Dates: start: 19990617
  6. FUNGIZONE [Concomitant]
     Dosage: 6 ML/D
     Route: 048
     Dates: start: 19990617
  7. ZOVIRAX ^BURROUGHS^ [Concomitant]
     Dosage: 400 MG/D
     Route: 048
  8. ALFAROL [Concomitant]
     Dosage: 1.2 ML/D
     Route: 048
     Dates: start: 20001226
  9. GASTER [Concomitant]
     Dosage: 15 MG/D
     Route: 048
     Dates: start: 20001226

REACTIONS (29)
  - ASTHENIA [None]
  - BLOOD CREATININE INCREASED [None]
  - BLOOD UREA INCREASED [None]
  - DRUG LEVEL DECREASED [None]
  - EYE MOVEMENT DISORDER [None]
  - GRAND MAL CONVULSION [None]
  - HAEMODIALYSIS [None]
  - HYPERCHOLESTEROLAEMIA [None]
  - HYPOALBUMINAEMIA [None]
  - HYPOVENTILATION [None]
  - INTERLEUKIN LEVEL INCREASED [None]
  - LETHARGY [None]
  - NEPHROTIC SYNDROME [None]
  - NYSTAGMUS [None]
  - OEDEMA [None]
  - OLIGURIA [None]
  - PALLOR [None]
  - PARALYSIS FLACCID [None]
  - PARTIAL SEIZURES [None]
  - PERITONEAL DIALYSIS [None]
  - PROTEINURIA [None]
  - PYREXIA [None]
  - RENAL FAILURE ACUTE [None]
  - RENAL TUBULAR NECROSIS [None]
  - SOMNOLENCE [None]
  - SUPERIOR SAGITTAL SINUS THROMBOSIS [None]
  - TOXIC INDUCED ENCEPHALOPATHY [None]
  - TRANSAMINASES INCREASED [None]
  - VOMITING [None]
